FAERS Safety Report 7486104-8 (Version None)
Quarter: 2011Q2

REPORT INFORMATION
  Report Type: 
  Country: None (occurrence: None)
  Receive Date: 20110517
  Receipt Date: 20110217
  Transmission Date: 20111010
  Serious: No
  Sender: FDA-Public Use
  Company Number: PHHY2011DE14457

PATIENT
  Sex: Female

DRUGS (2)
  1. TASIGNA [Suspect]
     Dosage: UNK
     Dates: start: 20110101
  2. GLEEVEC [Suspect]
     Indication: CHRONIC MYELOID LEUKAEMIA
     Dosage: UNK
     Route: 048
     Dates: start: 20100301, end: 20100101

REACTIONS (2)
  - PLATELET COUNT DECREASED [None]
  - EYE INFECTION [None]
